FAERS Safety Report 18713648 (Version 3)
Quarter: 2021Q2

REPORT INFORMATION
  Report Type: Spontaneous
  Country: US (occurrence: US)
  Receive Date: 20210107
  Receipt Date: 20210407
  Transmission Date: 20210717
  Serious: Yes (Other)
  Sender: FDA-Public Use
  Company Number: US-BAYER-2021-016111

PATIENT
  Age: 46 Year
  Sex: Female
  Weight: 66.22 kg

DRUGS (2)
  1. MIRENA [Suspect]
     Active Substance: LEVONORGESTREL
     Indication: CONTRACEPTION
     Dosage: 20 ?G PER DAY, CONTINUOUSLY
     Route: 015
     Dates: start: 20190416, end: 20201125
  2. MIRENA [Suspect]
     Active Substance: LEVONORGESTREL
     Indication: UTERINE HAEMORRHAGE

REACTIONS (3)
  - Menometrorrhagia [None]
  - Embedded device [Recovered/Resolved]
  - Ovarian cyst [None]

NARRATIVE: CASE EVENT DATE: 20201125
